FAERS Safety Report 4988817-6 (Version None)
Quarter: 2006Q2

REPORT INFORMATION
  Report Type: 
  Country: None (occurrence: None)
  Receive Date: 20060426
  Receipt Date: 20060411
  Transmission Date: 20061013
  Serious: Yes (Hospitalization)
  Sender: FDA-Public Use
  Company Number: GB200603005506

PATIENT
  Age: 58 Year
  Sex: Female
  Weight: 97 kg

DRUGS (15)
  1. YENTREVE (DULOXETINE HYDROCHLORIDE) CAPSULE [Suspect]
     Indication: STRESS INCONTINENCE
     Dosage: 40 MG, 2/D, ORAL
     Route: 048
     Dates: start: 20060201
  2. DIURETICS [Concomitant]
  3. ACETYLSALICYLIC ACID SRT [Concomitant]
  4. DOXYCYCLINE [Concomitant]
  5. AMOXICILLIN [Concomitant]
  6. TIOTROPIUM [Concomitant]
  7. BUDESONIDE W/FORMOTEROL FUMARATE [Concomitant]
  8. OMEPRAZOLE [Concomitant]
  9. ACETAMINOPHEN [Concomitant]
  10. BECLOMETHASONE AQUEOUS (BECLOMETASONE DIPROPIONATE) [Concomitant]
  11. GAVISCON [Concomitant]
  12. SALBUTAMOL [Concomitant]
  13. CAPASAL (COAL TAR, COCONUT OIL, SALYCLIC ACID) [Concomitant]
  14. QUININE [Concomitant]
  15. SPIRONOLACTONE [Concomitant]

REACTIONS (3)
  - CHRONIC OBSTRUCTIVE PULMONARY DISEASE [None]
  - CONDITION AGGRAVATED [None]
  - HYPONATRAEMIA [None]
